FAERS Safety Report 14966632 (Version 1)
Quarter: 2018Q2

REPORT INFORMATION
  Report Type: Spontaneous
  Country: SE (occurrence: SE)
  Receive Date: 20180604
  Receipt Date: 20180604
  Transmission Date: 20180711
  Serious: Yes (Disabling, Other)
  Sender: FDA-Public Use
  Company Number: SE-REGENERON PHARMACEUTICALS, INC.-2018-22243

PATIENT

DRUGS (2)
  1. EYLEA [Suspect]
     Active Substance: AFLIBERCEPT
     Dosage: BILATERAL INJECTIONS, LAST INJECTIONS PRIOR TO EVENTS ONSET
     Dates: start: 20171221, end: 20171221
  2. EYLEA [Suspect]
     Active Substance: AFLIBERCEPT
     Indication: CHOROIDAL NEOVASCULARISATION
     Dosage: BOTH EYES, 2 INJECTIONS IN THE RIGHT EYE, 1 INJECTION IN THE LEFT EYE

REACTIONS (6)
  - Vitrectomy [Unknown]
  - Eye inflammation [Unknown]
  - Uveitis [Recovered/Resolved with Sequelae]
  - Non-infectious endophthalmitis [Recovered/Resolved with Sequelae]
  - Non-infectious endophthalmitis [Recovered/Resolved with Sequelae]
  - Uveitis [Recovered/Resolved with Sequelae]

NARRATIVE: CASE EVENT DATE: 20171227
